FAERS Safety Report 19237816 (Version 1)
Quarter: 2021Q2

REPORT INFORMATION
  Report Type: Other
  Country: DE (occurrence: DE)
  Receive Date: 20210510
  Receipt Date: 20210510
  Transmission Date: 20210717
  Serious: No
  Sender: FDA-Public Use
  Company Number: DE-LUPIN PHARMACEUTICALS INC.-2021-06244

PATIENT
  Age: 40 Year
  Sex: Male
  Weight: 92 kg

DRUGS (2)
  1. TADALAFIL FILMTABLETTEN [Suspect]
     Active Substance: TADALAFIL
     Dosage: 5 MILLIGRAM
     Route: 048
     Dates: start: 2021
  2. TADALAFIL FILMTABLETTEN [Suspect]
     Active Substance: TADALAFIL
     Indication: ERECTILE DYSFUNCTION
     Dosage: 20 MILLIGRAM
     Route: 048
     Dates: start: 2020

REACTIONS (4)
  - Vitamin B12 decreased [Unknown]
  - Gastric mucosal lesion [Unknown]
  - Mean cell volume increased [Unknown]
  - Dyspepsia [Unknown]

NARRATIVE: CASE EVENT DATE: 2020
